FAERS Safety Report 4453850-X (Version None)
Quarter: 2004Q3

REPORT INFORMATION
  Report Type: 
  Country: None (occurrence: None)
  Receive Date: 20040920
  Receipt Date: 20040913
  Transmission Date: 20050211
  Serious: Yes (Other)
  Sender: FDA-Public Use
  Company Number: JP-MERCK-0409USA01303

PATIENT
  Age: 48 Year
  Sex: Male

DRUGS (5)
  1. LIPITOR [Suspect]
     Route: 048
     Dates: start: 20040531, end: 20040901
  2. PLETAL [Suspect]
     Route: 048
     Dates: start: 20040622, end: 20040903
  3. PEPCID RPD [Suspect]
     Route: 048
     Dates: start: 20040622, end: 20040903
  4. PREDONINE [Concomitant]
     Route: 048
     Dates: start: 20040622
  5. ACECOL [Suspect]
     Route: 048
     Dates: start: 20040813, end: 20040903

REACTIONS (1)
  - LIVER DISORDER [None]
